FAERS Safety Report 10210928 (Version 4)
Quarter: 2014Q3

REPORT INFORMATION
  Report Type: Spontaneous
  Country: CO (occurrence: CO)
  Receive Date: 20140602
  Receipt Date: 20140902
  Transmission Date: 20150326
  Serious: Yes (Death, Hospitalization, Other)
  Sender: FDA-Public Use
  Company Number: CO-AMGEN-COLSP2014039635

PATIENT
  Age: 36 Year
  Sex: Male
  Weight: 56.6 kg

DRUGS (1)
  1. VECTIBIX [Suspect]
     Active Substance: PANITUMUMAB
     Indication: COLORECTAL CANCER METASTATIC
     Dosage: UNK UNK, EVERY TWO WEEKS
     Route: 042
     Dates: start: 20140520, end: 20140624

REACTIONS (5)
  - Death [Fatal]
  - Rash [Recovered/Resolved]
  - Xerophthalmia [Recovered/Resolved]
  - Dyspnoea [Unknown]
  - Investigation [Unknown]

NARRATIVE: CASE EVENT DATE: 201405
